FAERS Safety Report 6849880-0 (Version None)
Quarter: 2010Q3

REPORT INFORMATION
  Report Type: 
  Country: None (occurrence: None)
  Receive Date: 20100716
  Receipt Date: 20071005
  Transmission Date: 20110219
  Serious: No
  Sender: FDA-Public Use
  Company Number: US-PFIZER INC-2007085712

PATIENT

DRUGS (1)
  1. CHANTIX [Suspect]
     Dates: start: 20071003

REACTIONS (7)
  - ABDOMINAL PAIN UPPER [None]
  - DIARRHOEA [None]
  - HEADACHE [None]
  - LETHARGY [None]
  - NAUSEA [None]
  - VISION BLURRED [None]
  - VOMITING [None]
